FAERS Safety Report 7571957 (Version 3)
Quarter: 2013Q2

REPORT INFORMATION
  Report Type: Spontaneous
  Country: US (occurrence: US)
  Receive Date: 20100903
  Receipt Date: 20130415
  Transmission Date: 20140414
  Serious: Yes (Death, Hospitalization)
  Sender: FDA-Public Use
  Company Number: US-RANBAXY-2010US-37693

PATIENT
  Age: 52 Year
  Sex: Female

DRUGS (3)
  1. DOXYCYCLINE [Suspect]
     Indication: LYME DISEASE
     Dosage: UNK
     Route: 065
  2. CEFUROXIME AXETIL [Suspect]
     Indication: LYME DISEASE
     Dosage: UNK
     Route: 048
  3. TELITHROMYCIN [Suspect]
     Indication: LYME DISEASE
     Dosage: UNK
     Route: 048

REACTIONS (2)
  - Clostridium difficile colitis [Fatal]
  - Cardiac arrest [Fatal]
